FAERS Safety Report 4451669-7 (Version None)
Quarter: 2004Q3

REPORT INFORMATION
  Report Type: 
  Country: None (occurrence: None)
  Receive Date: 20040915
  Receipt Date: 20040906
  Transmission Date: 20050211
  Serious: Yes (Hospitalization)
  Sender: FDA-Public Use
  Company Number: 2002098133HU

PATIENT
  Age: 46 Year
  Sex: Male

DRUGS (3)
  1. CAMPTOSAR [Suspect]
     Indication: COLON CANCER
     Dosage: 180 MG/M2, CYCLIC, IV
     Route: 042
     Dates: start: 20011015, end: 20020311
  2. FLUOROURACIL [Suspect]
     Indication: COLON CANCER
     Dosage: 1000 MG/M2, CYCLIC, IV
     Route: 042
     Dates: start: 20011015, end: 20020311
  3. LEUCOVROIN (FOLINIC ACID) [Suspect]
     Indication: COLON CANCER
     Dosage: 200 MG/M2, CYCLIC, IV
     Route: 042
     Dates: start: 20011015, end: 20020311

REACTIONS (1)
  - DEEP VEIN THROMBOSIS [None]
